FAERS Safety Report 7458463-3 (Version None)
Quarter: 2011Q2

REPORT INFORMATION
  Report Type: 
  Country: None (occurrence: None)
  Receive Date: 20110504
  Receipt Date: 20110429
  Transmission Date: 20111010
  Serious: Yes (Other)
  Sender: FDA-Public Use
  Company Number: B0716978A

PATIENT
  Sex: Female

DRUGS (1)
  1. ZOVIRAX [Suspect]
     Route: 047

REACTIONS (3)
  - EYE PAIN [None]
  - PRODUCT QUALITY ISSUE [None]
  - CORNEAL LESION [None]
